FAERS Safety Report 6663734-4 (Version None)
Quarter: 2010Q1

REPORT INFORMATION
  Report Type: 
  Country: None (occurrence: None)
  Receive Date: 20100331
  Receipt Date: 20100331
  Transmission Date: 20100710
  Serious: Yes (Hospitalization)
  Sender: FDA-Public Use
  Company Number: None

PATIENT
  Age: 38 Year
  Sex: Female
  Weight: 54.8852 kg

DRUGS (1)
  1. YAZ [Suspect]
     Indication: CONTRACEPTION
     Dosage: 1 PILL DAILY PO, 2 MONTHLY CYCLES
     Route: 048
     Dates: start: 20100201, end: 20100329

REACTIONS (3)
  - HEADACHE [None]
  - MIGRAINE [None]
  - VERTIGO [None]
